FAERS Safety Report 7594141-8 (Version None)
Quarter: 2011Q3

REPORT INFORMATION
  Report Type: 
  Country: None (occurrence: None)
  Receive Date: 20110706
  Receipt Date: 20110627
  Transmission Date: 20111222
  Serious: Yes (Other)
  Sender: FDA-Public Use
  Company Number: US-ASTRAZENECA-2010SE14036

PATIENT
  Age: 41 Year
  Sex: Male
  Weight: 54.4 kg

DRUGS (8)
  1. SEROQUEL [Suspect]
     Indication: ANXIETY
     Route: 048
     Dates: start: 20090101, end: 20100301
  2. SEROQUEL [Suspect]
     Route: 048
     Dates: end: 20100601
  3. SEROQUEL [Suspect]
     Dosage: 300 MG AT NIGHT AND 50 MG IN AM
     Route: 048
     Dates: start: 20100101, end: 20110601
  4. SEROQUEL [Suspect]
     Indication: BIPOLAR DISORDER
     Route: 048
     Dates: start: 20090101, end: 20100301
  5. SEROQUEL [Suspect]
     Route: 048
     Dates: start: 20100301
  6. SEROQUEL [Suspect]
     Dosage: 300 MG AT NIGHT AND 50 MG IN AM
     Route: 048
     Dates: start: 20100101, end: 20110601
  7. SEROQUEL [Suspect]
     Route: 048
     Dates: start: 20100301
  8. SEROQUEL [Suspect]
     Route: 048
     Dates: end: 20100601

REACTIONS (13)
  - COLD SWEAT [None]
  - INTENTIONAL DRUG MISUSE [None]
  - LOSS OF CONSCIOUSNESS [None]
  - DEHYDRATION [None]
  - HEAT ILLNESS [None]
  - NIGHTMARE [None]
  - OFF LABEL USE [None]
  - MANIA [None]
  - DRUG DOSE OMISSION [None]
  - DISTURBANCE IN ATTENTION [None]
  - HEAT STROKE [None]
  - INSOMNIA [None]
  - DRUG INEFFECTIVE [None]
